FAERS Safety Report 4855537-8 (Version None)
Quarter: 2005Q4

REPORT INFORMATION
  Report Type: 
  Country: None (occurrence: None)
  Receive Date: 20051216
  Receipt Date: 20051205
  Transmission Date: 20060501
  Serious: Yes (Hospitalization)
  Sender: FDA-Public Use
  Company Number: DE-AMGEN-UK160308

PATIENT
  Sex: Male
  Weight: 94 kg

DRUGS (2)
  1. NEULASTA [Suspect]
     Indication: CHEMOTHERAPY
     Route: 058
     Dates: start: 20051123
  2. METHOTREXATE [Concomitant]
     Route: 037
     Dates: start: 20051117

REACTIONS (2)
  - NEURITIS [None]
  - PAIN OF SKIN [None]
